FAERS Safety Report 17588673 (Version 1)
Quarter: 2020Q1

REPORT INFORMATION
  Report Type: Spontaneous
  Country: JP (occurrence: JP)
  Receive Date: 20200327
  Receipt Date: 20200327
  Transmission Date: 20200409
  Serious: Yes (Hospitalization, Other)
  Sender: FDA-Public Use
  Company Number: JP-AMGEN-JPNSP2019064771

PATIENT
  Age: 77 Year
  Sex: Female
  Weight: 43.8 kg

DRUGS (20)
  1. PARSABIV [Suspect]
     Active Substance: ETELCALCETIDE HYDROCHLORIDE
     Dosage: 7.5 MILLIGRAM, 3 TIMES/WK, Q56H
     Route: 010
     Dates: start: 20190101
  2. OXAROL [Concomitant]
     Active Substance: MAXACALCITOL
     Dosage: 5 MILLIGRAM, 3 TIMES/WK
     Route: 065
     Dates: start: 20190101, end: 20190808
  3. NESP [Concomitant]
     Active Substance: DARBEPOETIN ALFA
     Dosage: 10 MICROGRAM, QWK
     Route: 065
     Dates: start: 20191126
  4. FESIN [SACCHARATED IRON OXIDE] [Concomitant]
     Dosage: 40 MILLIGRAM, QWK
     Route: 065
     Dates: start: 20190919
  5. NESP [Concomitant]
     Active Substance: DARBEPOETIN ALFA
     Dosage: 10 MICROGRAM, QWK
     Route: 065
     Dates: start: 20190625, end: 20190917
  6. FOSRENOL [Concomitant]
     Active Substance: LANTHANUM CARBONATE
     Dosage: 2250 MILLIGRAM, QD
     Route: 048
     Dates: start: 20200225
  7. FESIN [SACCHARATED IRON OXIDE] [Concomitant]
     Dosage: 40 MILLIGRAM, QWK
     Route: 065
     Dates: start: 20181206, end: 20190124
  8. NESP [Concomitant]
     Active Substance: DARBEPOETIN ALFA
     Dosage: 20 MICROGRAM, QWK
     Route: 065
     Dates: start: 20190514, end: 20190521
  9. INSULIN [Concomitant]
     Active Substance: INSULIN NOS
     Dosage: UNK
     Route: 065
     Dates: start: 20181225
  10. FOSRENOL [Concomitant]
     Active Substance: LANTHANUM CARBONATE
     Dosage: 1500 MILLIGRAM, QD
     Route: 048
     Dates: end: 20200224
  11. PARSABIV [Suspect]
     Active Substance: ETELCALCETIDE HYDROCHLORIDE
     Indication: HYPERPARATHYROIDISM SECONDARY
     Dosage: 5 MILLIGRAM, 3 TIMES/WK
     Route: 010
     Dates: start: 20181009, end: 20181229
  12. NESP [Concomitant]
     Active Substance: DARBEPOETIN ALFA
     Indication: PRODUCT USED FOR UNKNOWN INDICATION
     Dosage: 30 MICROGRAM, QWK
     Route: 065
     Dates: end: 20190514
  13. NESP [Concomitant]
     Active Substance: DARBEPOETIN ALFA
     Dosage: 15 MICROGRAM, QWK
     Route: 065
     Dates: start: 20190528, end: 20190618
  14. NESP [Concomitant]
     Active Substance: DARBEPOETIN ALFA
     Dosage: 5 MICROGRAM, QWK
     Route: 065
     Dates: start: 20190924, end: 20191119
  15. OXAROL [Concomitant]
     Active Substance: MAXACALCITOL
     Dosage: 2.5 MICROGRAM, 3 TIMES/WK
     Route: 065
     Dates: start: 20190810
  16. FESIN [SACCHARATED IRON OXIDE] [Concomitant]
     Dosage: 120 MILLIGRAM, QWK
     Route: 065
     Dates: start: 20181108, end: 20181120
  17. FESIN [SACCHARATED IRON OXIDE] [Concomitant]
     Dosage: 80 MILLIGRAM, Q4WK
     Route: 065
     Dates: start: 20190223, end: 20190316
  18. FESIN [SACCHARATED IRON OXIDE] [Concomitant]
     Dosage: 120 MILLIGRAM, Q4WK
     Route: 065
     Dates: start: 20190404, end: 20190523
  19. OXAROL [Concomitant]
     Active Substance: MAXACALCITOL
     Dosage: 5 MICROGRAM, 2 TIMES/WK, Q84H
     Route: 065
     Dates: end: 20181229
  20. FESIN [SACCHARATED IRON OXIDE] [Concomitant]
     Dosage: 80 MILLIGRAM, Q4WK
     Route: 065
     Dates: start: 20190606, end: 20190905

REACTIONS (4)
  - Shunt stenosis [Recovered/Resolved]
  - Shunt stenosis [Recovering/Resolving]
  - Cardiac failure [Not Recovered/Not Resolved]
  - Peripheral arterial occlusive disease [Recovering/Resolving]

NARRATIVE: CASE EVENT DATE: 20181228
